FAERS Safety Report 25883948 (Version 1)
Quarter: 2025Q4

REPORT INFORMATION
  Report Type: Spontaneous
  Country: IN (occurrence: IN)
  Receive Date: 20251006
  Receipt Date: 20251006
  Transmission Date: 20260119
  Serious: Yes (Other)
  Sender: MYLAN
  Company Number: IN-MYLANLABS-2025M1084337

PATIENT
  Age: 45 Year
  Sex: Female

DRUGS (3)
  1. METHOTREXATE [Suspect]
     Active Substance: METHOTREXATE
     Indication: Lichen planus
     Dosage: 15 MILLIGRAM, QW (SCHEDULED FOR 15 WEEKS)
  2. TACROLIMUS [Suspect]
     Active Substance: TACROLIMUS
     Indication: Lichen planus
     Dosage: SCHEDULED FOR 15 WEEKS
  3. CLOBETASOL PROPIONATE [Suspect]
     Active Substance: CLOBETASOL PROPIONATE
     Indication: Lichen planus
     Dosage: SCHEDULED FOR 15 WEEKS

REACTIONS (2)
  - Drug ineffective for unapproved indication [Unknown]
  - Off label use [Unknown]
